FAERS Safety Report 10549653 (Version 4)
Quarter: 2015Q4

REPORT INFORMATION
  Report Type: Spontaneous
  Country: FR (occurrence: FR)
  Receive Date: 20141028
  Receipt Date: 20151104
  Transmission Date: 20160304
  Serious: Yes (Hospitalization)
  Sender: FDA-Public Use
  Company Number: FR-UCBSA-101743

PATIENT
  Age: 20 Year
  Sex: Female
  Weight: 62 kg

DRUGS (4)
  1. MICROPAKINE [Concomitant]
     Active Substance: VALPROIC ACID
     Indication: EPILEPSY
     Dosage: 250 G, ONCE DAILY (QD)
     Route: 048
     Dates: start: 1996, end: 20131004
  2. KEPPRA [Suspect]
     Active Substance: LEVETIRACETAM
     Dosage: 1500MG DAILY
     Route: 048
  3. SPECIAFOLDINE [Concomitant]
     Active Substance: FOLIC ACID
     Indication: PREGNANCY
     Dosage: 5 MG, ONCE DAILY (QD)
     Route: 048
     Dates: start: 201309
  4. KEPPRA [Suspect]
     Active Substance: LEVETIRACETAM
     Indication: EPILEPSY
     Dosage: 750 MG, ONCE DAILY (QD)
     Route: 048

REACTIONS (4)
  - Pregnancy [Unknown]
  - Drug ineffective [Not Recovered/Not Resolved]
  - False labour [Recovered/Resolved]
  - Incorrect drug administration rate [Not Recovered/Not Resolved]

NARRATIVE: CASE EVENT DATE: 20130906
